FAERS Safety Report 11872465 (Version 1)
Quarter: 2015Q4

REPORT INFORMATION
  Report Type: Spontaneous
  Country: US (occurrence: None)
  Receive Date: 20151224
  Receipt Date: 20151224
  Transmission Date: 20160305
  Serious: Yes (Life-Threatening, Hospitalization)
  Sender: FDA-Public Use
  Company Number: None

PATIENT
  Age: 51 Year
  Sex: Female
  Weight: 59.42 kg

DRUGS (6)
  1. ORAJEL MAXIMUM STRENGTH [Suspect]
     Active Substance: BENZOCAINE\MENTHOL
     Indication: TOOTHACHE
     Route: 061
     Dates: start: 20151217, end: 20151219
  2. ADVIL [Concomitant]
     Active Substance: IBUPROFEN
  3. DOC--Q-LACE [Concomitant]
  4. DULCOLAX NOS [Concomitant]
     Active Substance: BISACODYL OR DOCUSATE SODIUM
  5. TRAMADOL. [Concomitant]
     Active Substance: TRAMADOL
  6. PROMETHAZINE [Concomitant]
     Active Substance: PROMETHAZINE\PROMETHAZINE HYDROCHLORIDE

REACTIONS (4)
  - Heart rate decreased [None]
  - Oxygen saturation decreased [None]
  - Cyanosis [None]
  - General physical health deterioration [None]

NARRATIVE: CASE EVENT DATE: 20151219
